FAERS Safety Report 7611708-9 (Version None)
Quarter: 2011Q3

REPORT INFORMATION
  Report Type: 
  Country: None (occurrence: None)
  Receive Date: 20110715
  Receipt Date: 20110711
  Transmission Date: 20111222
  Serious: Yes (Hospitalization, Disabling, Other)
  Sender: FDA-Public Use
  Company Number: US-MERCK-1103USA03206

PATIENT
  Age: 62 Year
  Sex: Female

DRUGS (17)
  1. FLUTICASONE [Concomitant]
     Route: 065
     Dates: start: 20100201
  2. FOSAMAX [Suspect]
     Indication: OSTEOPOROSIS PROPHYLAXIS
     Route: 048
     Dates: start: 19971101, end: 20100224
  3. CORTICOSTEROIDS (UNSPECIFIED) [Concomitant]
     Route: 065
     Dates: start: 19990101, end: 20090101
  4. PREMARIN [Concomitant]
     Route: 067
  5. VAGIFEM [Concomitant]
     Route: 067
  6. HOMEOPATHIC MEDICATIONS (UNSPECIFIED) [Concomitant]
     Route: 065
  7. PREDNISONE [Concomitant]
     Route: 065
  8. [THERAPY UNSPECIFIED] [Concomitant]
     Route: 065
     Dates: start: 19940101, end: 20040101
  9. ALENDRONATE SODIUM [Suspect]
     Indication: OSTEOPENIA
     Route: 048
  10. OMEGA-3 MARINE TRIGLYCERIDES [Concomitant]
     Route: 065
     Dates: start: 20100101
  11. OSTEO-BI-FLEX [Concomitant]
     Route: 048
     Dates: start: 19900101
  12. FOSAMAX [Suspect]
     Indication: OSTEOPENIA
     Route: 048
     Dates: start: 19971101, end: 20100224
  13. VITAMINS (UNSPECIFIED) [Concomitant]
     Route: 065
     Dates: start: 19900101
  14. CALCIUM (UNSPECIFIED) AND VITAMIN D (UNSPECIFIED) [Concomitant]
     Route: 065
     Dates: start: 19900101
  15. HORMONES (UNSPECIFIED) [Concomitant]
     Route: 065
     Dates: start: 19880101, end: 20090101
  16. IBUPROFEN [Concomitant]
     Route: 065
  17. DAYPRO [Concomitant]
     Route: 065
     Dates: start: 20100201

REACTIONS (21)
  - STRESS FRACTURE [None]
  - OSTEONECROSIS OF JAW [None]
  - POLYMYALGIA RHEUMATICA [None]
  - SCOLIOSIS [None]
  - TOOTH DISORDER [None]
  - LYMPHADENOPATHY [None]
  - GINGIVAL RECESSION [None]
  - MERALGIA PARAESTHETICA [None]
  - ROTATOR CUFF SYNDROME [None]
  - FEMUR FRACTURE [None]
  - ANAEMIA POSTOPERATIVE [None]
  - FIBROCYSTIC BREAST DISEASE [None]
  - LOW TURNOVER OSTEOPATHY [None]
  - OSTEOPOROSIS [None]
  - CARPAL TUNNEL SYNDROME [None]
  - SCIATICA [None]
  - RHINITIS ALLERGIC [None]
  - VIRAL UPPER RESPIRATORY TRACT INFECTION [None]
  - TONSILLAR DISORDER [None]
  - OSTEOARTHRITIS [None]
  - DRUG INEFFECTIVE [None]
